FAERS Safety Report 7805935 (Version 7)
Quarter: 2015Q2

REPORT INFORMATION
  Report Type: Spontaneous
  Country: US (occurrence: US)
  Receive Date: 20110209
  Receipt Date: 20150505
  Transmission Date: 20150821
  Serious: Yes (Hospitalization, Other)
  Sender: FDA-Public Use
  Company Number: US-ASTRAZENECA-2011SE04370

PATIENT
  Age: 43 Year
  Sex: Female
  Weight: 80.7 kg

DRUGS (58)
  1. SYMBICORT [Suspect]
     Active Substance: BUDESONIDE\FORMOTEROL FUMARATE DIHYDRATE
     Indication: BRONCHITIS CHRONIC
     Dosage: 160/4.5 UG, 2 PUFF BID
     Route: 055
     Dates: start: 2009
  2. COREG [Concomitant]
     Active Substance: CARVEDILOL
     Indication: CARDIAC DISORDER
     Route: 048
     Dates: start: 2013
  3. WARFARIN SODIUM. [Concomitant]
     Active Substance: WARFARIN SODIUM
     Route: 048
  4. MARINOL [Concomitant]
     Active Substance: DRONABINOL
     Route: 048
  5. ONDANSETRON HCL [Concomitant]
     Active Substance: ONDANSETRON HYDROCHLORIDE
     Dosage: 4 MG EVERY SIX HOURS AS NEEDED
     Route: 048
  6. TIZANIDINE (TIZANIDINE) [Concomitant]
     Active Substance: TIZANIDINE
     Indication: TENSION HEADACHE
  7. ZOFANEX [Concomitant]
     Indication: BRONCHITIS CHRONIC
     Dosage: EMERGENCY INHALER, PRN
     Route: 055
  8. CRESTOR [Suspect]
     Active Substance: ROSUVASTATIN CALCIUM
     Indication: BLOOD CHOLESTEROL INCREASED
     Route: 048
     Dates: start: 2004
  9. AMITRIPTYLINE [Suspect]
     Active Substance: AMITRIPTYLINE
     Route: 065
  10. COUMADIN [Concomitant]
     Active Substance: WARFARIN SODIUM
     Indication: DEEP VEIN THROMBOSIS
  11. PANCREATIC ENZYMES [Concomitant]
     Active Substance: UNSPECIFIED INGREDIENT
  12. SINGULAIR [Concomitant]
     Active Substance: MONTELUKAST SODIUM
     Indication: CHRONIC OBSTRUCTIVE PULMONARY DISEASE
     Route: 048
  13. COLACE OTC [Concomitant]
     Indication: CONSTIPATION
     Dosage: 50 MG CAPSULE DAILY AS NEEDED
     Route: 048
     Dates: start: 201003
  14. ATROVENT [Concomitant]
     Active Substance: IPRATROPIUM BROMIDE
     Indication: CHRONIC OBSTRUCTIVE PULMONARY DISEASE
     Dosage: PRN
     Route: 055
  15. MORPHINE PUMP [Suspect]
     Active Substance: MORPHINE
     Indication: PAIN
     Route: 065
     Dates: start: 2010, end: 20140424
  16. COUMADIN [Concomitant]
     Active Substance: WARFARIN SODIUM
     Indication: DEEP VEIN THROMBOSIS
  17. COUMADIN [Concomitant]
     Active Substance: WARFARIN SODIUM
     Indication: DEEP VEIN THROMBOSIS
     Dates: start: 19990427
  18. SINGULAIR [Concomitant]
     Active Substance: MONTELUKAST SODIUM
     Indication: CHRONIC OBSTRUCTIVE PULMONARY DISEASE
     Dosage: 10 MG TABLET, ONE AT NIGHT AS NEEDED
     Route: 048
  19. SINGULAIR [Concomitant]
     Active Substance: MONTELUKAST SODIUM
     Indication: ASTHMA
     Route: 048
  20. SINGULAIR [Concomitant]
     Active Substance: MONTELUKAST SODIUM
     Indication: MULTIPLE ALLERGIES
     Route: 048
  21. PROMETHAZINE HCL [Concomitant]
     Active Substance: PROMETHAZINE HYDROCHLORIDE
     Indication: NAUSEA
     Dosage: 25 MG EVERY 6 HOURS AS NEEDED
     Route: 048
     Dates: start: 1999
  22. NEXIUM [Suspect]
     Active Substance: ESOMEPRAZOLE MAGNESIUM
     Indication: GASTROOESOPHAGEAL REFLUX DISEASE
     Route: 048
     Dates: start: 2001
  23. LISINOPRIL. [Suspect]
     Active Substance: LISINOPRIL
     Indication: BLOOD PRESSURE ABNORMAL
     Route: 048
     Dates: start: 20140206
  24. VITAMIN D HIGH POTENCY [Concomitant]
     Indication: VITAMIN D
     Route: 048
     Dates: start: 2013
  25. NITROSTAT [Concomitant]
     Active Substance: NITROGLYCERIN
     Dosage: 0.4 MG TABLET UNDER LOUNGE EVERY 5 MINUTES AS NEEDED
     Route: 060
  26. ZOFRAN [Concomitant]
     Active Substance: ONDANSETRON HYDROCHLORIDE
     Indication: NAUSEA
     Dates: start: 1999
  27. CALCIUM [Concomitant]
     Active Substance: CALCIUM
     Indication: MINERAL SUPPLEMENTATION
     Dates: start: 2012
  28. VALIUM [Concomitant]
     Active Substance: DIAZEPAM
     Indication: TINNITUS
     Dates: start: 201306
  29. LASIX [Concomitant]
     Active Substance: FUROSEMIDE
     Route: 048
  30. ZANAFLEX [Concomitant]
     Active Substance: TIZANIDINE HYDROCHLORIDE
     Route: 048
  31. CALCIUM [Concomitant]
     Active Substance: CALCIUM
     Indication: OSTEOPOROSIS
     Dates: start: 2012
  32. ZOFANEX [Concomitant]
     Indication: ASTHMA
     Dosage: PRN
     Route: 055
  33. FISH OIL [Concomitant]
     Active Substance: FISH OIL
     Indication: BLOOD CHOLESTEROL ABNORMAL
     Route: 048
     Dates: start: 2012
  34. SPIRONOLACTONE. [Concomitant]
     Active Substance: SPIRONOLACTONE
     Dosage: TWO TIMES A DAY, AS NEEDED
     Route: 048
  35. KLOR-CON [Concomitant]
     Active Substance: POTASSIUM CHLORIDE
     Route: 048
  36. ZOFANEX [Concomitant]
     Indication: CHRONIC OBSTRUCTIVE PULMONARY DISEASE
     Dosage: PRN
     Route: 055
  37. ZOFANEX [Concomitant]
     Indication: BRONCHITIS CHRONIC
     Dosage: PRN
     Route: 055
  38. NEXIUM [Suspect]
     Active Substance: ESOMEPRAZOLE MAGNESIUM
     Indication: GASTROOESOPHAGEAL REFLUX DISEASE
     Route: 048
     Dates: start: 2004
  39. VITAMIN D HIGH POTENCY [Concomitant]
     Indication: VITAMIN D
     Dosage: 1000 UNIT 2 CAPSULES DAILY
     Route: 048
     Dates: start: 2012
  40. VITAMIN D HIGH POTENCY [Concomitant]
     Indication: OSTEOPOROSIS
     Route: 048
     Dates: start: 2013
  41. SINGULAIR [Concomitant]
     Active Substance: MONTELUKAST SODIUM
     Indication: ASTHMA
     Dosage: 10 MG TABLET, ONE AT NIGHT AS NEEDED
     Route: 048
  42. SINGULAIR [Concomitant]
     Active Substance: MONTELUKAST SODIUM
     Indication: MULTIPLE ALLERGIES
     Dosage: 10 MG TABLET, ONE AT NIGHT AS NEEDED
     Route: 048
  43. DULCOLAX [Concomitant]
     Active Substance: BISACODYL OR DOCUSATE SODIUM
     Indication: CONSTIPATION
     Dosage: 5 MG TABLET DAILY AS NEEDED
     Route: 048
     Dates: start: 201003
  44. FLONASE [Concomitant]
     Active Substance: FLUTICASONE PROPIONATE
     Indication: MULTIPLE ALLERGIES
     Dosage: 50 MCG ACT SUSPENSION 2 DAILY/ 2 SPRAYS IN EACH NOSTRIL DAILY
     Route: 045
  45. SPIRONOLACTONE. [Concomitant]
     Active Substance: SPIRONOLACTONE
     Route: 048
  46. FUROSEMIDE. [Concomitant]
     Active Substance: FUROSEMIDE
  47. KDUR [Concomitant]
     Indication: SUPPLEMENTATION THERAPY
  48. ZOFANEX [Concomitant]
     Indication: ASTHMA
     Dosage: EMERGENCY INHALER, PRN
     Route: 055
  49. SYMBICORT [Suspect]
     Active Substance: BUDESONIDE\FORMOTEROL FUMARATE DIHYDRATE
     Indication: ASTHMA
     Dosage: 160/4.5 UG, 2 PUFF BID
     Route: 055
     Dates: start: 2009
  50. SYMBICORT [Suspect]
     Active Substance: BUDESONIDE\FORMOTEROL FUMARATE DIHYDRATE
     Indication: CHRONIC OBSTRUCTIVE PULMONARY DISEASE
     Dosage: 160/4.5 UG, 2 PUFF BID
     Route: 055
     Dates: start: 2009
  51. LISINOPRIL. [Suspect]
     Active Substance: LISINOPRIL
     Indication: BLOOD PRESSURE ABNORMAL
     Route: 048
  52. OMEPRAZOLE. [Suspect]
     Active Substance: OMEPRAZOLE
     Indication: GASTROOESOPHAGEAL REFLUX DISEASE
     Route: 048
  53. LIPITOR [Suspect]
     Active Substance: ATORVASTATIN CALCIUM
  54. CREON [Concomitant]
     Active Substance: PANCRELIPASE AMYLASE\PANCRELIPASE LIPASE\PANCRELIPASE PROTEASE
     Indication: PANCREATITIS
     Dosage: 240000 UNIT 3 CAPSULE FOUR TIMES A DAY
     Route: 048
     Dates: start: 2004
  55. COREG [Concomitant]
     Active Substance: CARVEDILOL
     Indication: CARDIAC DISORDER
     Route: 048
  56. VITAMIN D HIGH POTENCY [Concomitant]
     Indication: OSTEOPOROSIS
     Dosage: 1000 UNIT 2 CAPSULES DAILY
     Route: 048
     Dates: start: 2012
  57. NITROQUICK [Concomitant]
     Active Substance: NITROGLYCERIN
     Indication: CHEST PAIN
     Dates: start: 201111
  58. ZOFANEX [Concomitant]
     Indication: CHRONIC OBSTRUCTIVE PULMONARY DISEASE
     Dosage: EMERGENCY INHALER, PRN
     Route: 055

REACTIONS (51)
  - Cerebrovascular accident [Unknown]
  - Gastric haemorrhage [Unknown]
  - Haematemesis [Unknown]
  - Thrombosis [Unknown]
  - Vocal cord disorder [Unknown]
  - Asthma [Unknown]
  - Hallucination [Unknown]
  - Pneumonia bacterial [Unknown]
  - Chronic obstructive pulmonary disease [Unknown]
  - Dizziness [Unknown]
  - Oral mucosal blistering [Unknown]
  - Oral mucosal blistering [Unknown]
  - Retroperitoneal haematoma [Unknown]
  - Pain [Unknown]
  - Pancreatitis acute [Unknown]
  - Chest pain [Unknown]
  - Impaired work ability [Not Recovered/Not Resolved]
  - Device failure [Unknown]
  - Ear infection viral [Not Recovered/Not Resolved]
  - Hepatic steatosis [Unknown]
  - Chest discomfort [Unknown]
  - Balance disorder [Unknown]
  - Stress [Unknown]
  - Osteoporosis [Unknown]
  - Adverse event [Unknown]
  - Off label use [Unknown]
  - Pancreatitis chronic [Unknown]
  - Arterial haemorrhage [Unknown]
  - Pneumonia [Unknown]
  - Agitation [Not Recovered/Not Resolved]
  - Blood pressure decreased [Unknown]
  - Hearing impaired [Unknown]
  - Gastrooesophageal reflux disease [Unknown]
  - Hiatus hernia [Unknown]
  - Tinnitus [Recovered/Resolved]
  - Anxiety [Unknown]
  - Myocardial infarction [Unknown]
  - Cardiac failure congestive [Unknown]
  - Disturbance in attention [Unknown]
  - Pharyngeal oedema [Unknown]
  - Peripheral swelling [Unknown]
  - Intentional product misuse [Unknown]
  - Drug dose omission [Unknown]
  - Full blood count decreased [Unknown]
  - Abdominal pain [Recovering/Resolving]
  - Vomiting [Unknown]
  - Malaise [Unknown]
  - Tremor [Unknown]
  - Insomnia [Unknown]
  - Productive cough [Unknown]
  - Drug hypersensitivity [Unknown]

NARRATIVE: CASE EVENT DATE: 1993
